FAERS Safety Report 5020730-0 (Version None)
Quarter: 2006Q2

REPORT INFORMATION
  Report Type: 
  Country: None (occurrence: None)
  Receive Date: 20060601
  Receipt Date: 20060523
  Transmission Date: 20061013
  Serious: Yes (Life-Threatening)
  Sender: FDA-Public Use
  Company Number: 2006-05-1909

PATIENT
  Sex: 0

DRUGS (3)
  1. PEG-INTRON [Suspect]
     Indication: HEPATITIS C
     Dosage: 100 MCG QW SUBCUTANEOUS
     Route: 058
     Dates: start: 20060401, end: 20060401
  2. REBETOL [Suspect]
     Indication: HEPATITIS C
     Dosage: ORAL
     Route: 048
     Dates: start: 20060401, end: 20060401
  3. PROGRAF [Suspect]
     Indication: LIVER TRANSPLANT REJECTION
     Dosage: ORAL
     Route: 048
     Dates: start: 20060304, end: 20060427

REACTIONS (3)
  - ABNORMAL BEHAVIOUR [None]
  - CEREBRAL HAEMORRHAGE [None]
  - DYSARTHRIA [None]
